FAERS Safety Report 24417020 (Version 2)
Quarter: 2024Q4

REPORT INFORMATION
  Report Type: Spontaneous
  Country: US (occurrence: US)
  Receive Date: 20241009
  Receipt Date: 20241017
  Transmission Date: 20250115
  Serious: No
  Sender: BAYER HEALTHCARE LLC
  Company Number: US-BAYER-2024A142588

PATIENT
  Age: 69 Year
  Sex: Female

DRUGS (2)
  1. DIETARY SUPPLEMENT [Suspect]
     Active Substance: DIETARY SUPPLEMENT
     Indication: Gastrointestinal disorder
     Dosage: 4 DF
     Route: 048
     Dates: start: 20240913, end: 20240930
  2. DIETARY SUPPLEMENT [Suspect]
     Active Substance: DIETARY SUPPLEMENT
     Indication: Constipation

REACTIONS (1)
  - Drug ineffective [Unknown]
